FAERS Safety Report 8511635 (Version 3)
Quarter: 2012Q4

REPORT INFORMATION
  Report Type: 
  Country: US (occurrence: US)
  Receive Date: 20120413
  Receipt Date: 20121120
  Transmission Date: 20130627
  Serious: No
  Sender: FDA-Public Use
  Company Number: US-ASTRAZENECA-2012SE04782

PATIENT
  Age: 74 Year
  Sex: Female
  Weight: 76.2 kg

DRUGS (13)
  1. NEXIUM [Suspect]
     Indication: GASTROOESOPHAGEAL REFLUX DISEASE
     Route: 048
     Dates: start: 2005
  2. NEXIUM [Suspect]
     Indication: GASTRITIS
     Route: 048
     Dates: start: 2005
  3. NEXIUM [Suspect]
     Indication: HAEMATOCHEZIA
     Route: 048
     Dates: start: 2005
  4. NEXIUM [Suspect]
     Indication: GASTROOESOPHAGEAL REFLUX DISEASE
     Route: 048
     Dates: start: 201106
  5. NEXIUM [Suspect]
     Indication: GASTRITIS
     Route: 048
     Dates: start: 201106
  6. NEXIUM [Suspect]
     Indication: HAEMATOCHEZIA
     Route: 048
     Dates: start: 201106
  7. PRILOSEC [Suspect]
     Route: 048
  8. CODEINE [Concomitant]
     Indication: COUGH
  9. PREVACID [Concomitant]
  10. BLOOD PRESSURE MEDICATION [Concomitant]
  11. METFORMIN [Concomitant]
  12. PAIN KILLERS [Concomitant]
  13. VITAMIN D [Concomitant]

REACTIONS (10)
  - Osteoporosis [Unknown]
  - Arthritis [Unknown]
  - Anorectal discomfort [Unknown]
  - Dysphagia [Unknown]
  - Thinking abnormal [Unknown]
  - Gastrooesophageal reflux disease [Unknown]
  - Off label use [Unknown]
  - Off label use [Unknown]
  - Drug ineffective [Unknown]
  - Back disorder [Unknown]
